FAERS Safety Report 20581018 (Version 1)
Quarter: 2022Q1

REPORT INFORMATION
  Report Type: Spontaneous
  Country: IT (occurrence: IT)
  Receive Date: 20220311
  Receipt Date: 20220311
  Transmission Date: 20220423
  Serious: Yes (Other)
  Sender: FDA-Public Use
  Company Number: None

PATIENT
  Age: 36 Year
  Sex: Female

DRUGS (2)
  1. LEMTRADA [Suspect]
     Active Substance: ALEMTUZUMAB
     Indication: Multiple sclerosis
     Dosage: 1 DF
     Dates: start: 20160401
  2. LEMTRADA [Suspect]
     Active Substance: ALEMTUZUMAB
     Dosage: 1 DF
     Dates: end: 20170401

REACTIONS (1)
  - Genital herpes zoster [Not Recovered/Not Resolved]

NARRATIVE: CASE EVENT DATE: 20190501
